FAERS Safety Report 10197813 (Version 1)
Quarter: 2014Q2

REPORT INFORMATION
  Report Type: Report from Study
  Country: CZ (occurrence: CZ)
  Receive Date: 20140527
  Receipt Date: 20140527
  Transmission Date: 20141212
  Serious: Yes (Hospitalization)
  Sender: FDA-Public Use
  Company Number: CZ-BRISTOL-MYERS SQUIBB COMPANY-20810115

PATIENT
  Age: 66 Year
  Sex: Female

DRUGS (11)
  1. PACLITAXEL [Suspect]
     Indication: BREAST CANCER METASTATIC
     Dosage: LAST DOSE PRIOR TO EVENT:30/APR/2014 (90 MG/M2,QS)
     Route: 042
     Dates: start: 20130925
  2. LETROX [Concomitant]
     Indication: HYPOTHYROIDISM
     Dosage: 1DF:75UG
     Route: 048
     Dates: start: 2003
  3. FORMOTEROL FUMARATE [Concomitant]
     Indication: ASTHMA
     Dosage: 1DF:12UG
     Route: 055
     Dates: start: 1997
  4. ATROVENT [Concomitant]
     Indication: ASTHMA
     Route: 055
     Dates: start: 1997
  5. BUDESONIDE [Concomitant]
     Indication: ASTHMA
     Dosage: 1DF:200UG
     Route: 055
     Dates: start: 1997
  6. XYZAL [Concomitant]
     Indication: ASTHMA
     Route: 048
     Dates: start: 2008
  7. ZOREM [Concomitant]
     Indication: HYPERTENSION
     Route: 048
     Dates: start: 2011
  8. DEXAMETHASONE [Concomitant]
     Indication: PROPHYLAXIS
     Route: 042
     Dates: start: 20130925
  9. RANITIDINE [Concomitant]
     Indication: PROPHYLAXIS
     Route: 042
     Dates: start: 20130925
  10. DITHIADEN [Concomitant]
     Indication: PROPHYLAXIS
     Route: 030
     Dates: start: 20131002
  11. SINGULAIR [Concomitant]
     Indication: ASTHMA
     Dosage: DOSE 1 OTHER
     Route: 048
     Dates: start: 20140510

REACTIONS (1)
  - Venous thrombosis [Recovered/Resolved]
